FAERS Safety Report 21219517 (Version 2)
Quarter: 2022Q3

REPORT INFORMATION
  Report Type: Spontaneous
  Country: DE (occurrence: DE)
  Receive Date: 20220817
  Receipt Date: 20220901
  Transmission Date: 20221026
  Serious: Yes (Hospitalization, Other)
  Sender: FDA-Public Use
  Company Number: DE-ALKEM LABORATORIES LIMITED-DE-ALKEM-2022-05908

PATIENT
  Age: 46 Year
  Sex: Male

DRUGS (22)
  1. MYCOPHENOLATE MOFETIL [Suspect]
     Active Substance: MYCOPHENOLATE MOFETIL
     Indication: Prophylaxis against transplant rejection
     Dosage: 540 MILLIGRAM, QD
     Route: 065
     Dates: start: 202010
  2. TACROLIMUS [Suspect]
     Active Substance: TACROLIMUS
     Indication: Prophylaxis against transplant rejection
     Dosage: 6 MILLIGRAM, QD
     Route: 048
     Dates: start: 202105
  3. TACROLIMUS [Suspect]
     Active Substance: TACROLIMUS
     Dosage: 2.25 MILLIGRAM, ONCE WEEKLY
     Route: 048
     Dates: end: 20220621
  4. TACROLIMUS [Suspect]
     Active Substance: TACROLIMUS
     Dosage: 12 MILLIGRAM, QD
     Route: 048
     Dates: start: 202010
  5. TACROLIMUS [Suspect]
     Active Substance: TACROLIMUS
     Dosage: 2.25 MILLIGRAM, ONCE WEEKLY
     Route: 048
     Dates: start: 20220629
  6. TACROLIMUS [Suspect]
     Active Substance: TACROLIMUS
     Dosage: 2.25 MILLIGRAM, EVERY 1 WEEK
     Route: 048
     Dates: start: 202105
  7. TACROLIMUS [Suspect]
     Active Substance: TACROLIMUS
     Dosage: 1 MILLIGRAM
     Route: 048
     Dates: start: 202108
  8. ARANESP [Suspect]
     Active Substance: DARBEPOETIN ALFA
     Indication: Prophylaxis against transplant rejection
     Dosage: 60 MICROGRAM, QD
     Route: 065
     Dates: start: 202010, end: 202105
  9. METHYLPREDNISOLONE [Suspect]
     Active Substance: METHYLPREDNISOLONE
     Indication: Prophylaxis against transplant rejection
     Dosage: 4 MILLIGRAM, QD
     Route: 065
     Dates: start: 202010
  10. BENZBROMARON AL [Concomitant]
     Indication: Blood uric acid increased
     Dosage: 100 MILLIGRAM
     Route: 065
  11. SODIUM BICARBONATE [Concomitant]
     Active Substance: SODIUM BICARBONATE
     Indication: Antacid therapy
     Dosage: 2 GRAM
     Route: 065
     Dates: start: 202010
  12. CANDESARTAN CILEXETIL\HYDROCHLOROTHIAZIDE [Concomitant]
     Active Substance: CANDESARTAN CILEXETIL\HYDROCHLOROTHIAZIDE
     Indication: Blood pressure measurement
     Dosage: 32 MILLIGRAM
     Route: 065
  13. Carmen [Concomitant]
     Indication: Blood pressure measurement
     Dosage: 20 MILLIGRAM
     Route: 065
  14. CARVEDILOL [Concomitant]
     Active Substance: CARVEDILOL
     Indication: Blood pressure measurement
     Dosage: 50 MILLIGRAM
     Route: 065
  15. CLONIDINE HYDROCHLORIDE [Concomitant]
     Active Substance: CLONIDINE HYDROCHLORIDE
     Indication: Blood pressure measurement
     Dosage: 250 MILLIGRAM
     Route: 065
  16. CHOLECALCIFEROL [Concomitant]
     Active Substance: CHOLECALCIFEROL
     Indication: Product used for unknown indication
     Dosage: UNK
     Route: 065
  17. FOLIC ACID [Concomitant]
     Active Substance: FOLIC ACID
     Indication: Product used for unknown indication
     Dosage: 5 MILLIGRAM
     Route: 065
  18. DAPAGLIFLOZIN [Concomitant]
     Active Substance: DAPAGLIFLOZIN
     Indication: Diuretic therapy
     Dosage: 10 MILLIGRAM
     Route: 065
  19. MOXONIDINE [Concomitant]
     Active Substance: MOXONIDINE
     Indication: Blood pressure measurement
     Dosage: 0.6 MILLIGRAM
     Route: 065
  20. PANTOPRAZOLE [Concomitant]
     Active Substance: PANTOPRAZOLE
     Indication: Product used for unknown indication
     Dosage: 20 MILLIGRAM
     Route: 065
     Dates: start: 202010
  21. TAMSULOSIN [Concomitant]
     Active Substance: TAMSULOSIN
     Indication: Prostate infection
     Dosage: 0.4 MILLIGRAM
     Route: 065
  22. TORSEMIDE [Concomitant]
     Active Substance: TORSEMIDE
     Indication: Diuretic therapy
     Dosage: 30 MILLIGRAM
     Route: 065
     Dates: start: 202010

REACTIONS (6)
  - Anal abscess [Recovered/Resolved]
  - Blood pressure increased [Recovered/Resolved]
  - Fluid retention [Recovered/Resolved]
  - Transplant rejection [Recovered/Resolved]
  - Fluid retention [Recovered/Resolved]
  - Off label use [Unknown]

NARRATIVE: CASE EVENT DATE: 20210501
